FAERS Safety Report 9130432 (Version 1)
Quarter: 2013Q1

REPORT INFORMATION
  Report Type: Spontaneous
  Country: CA (occurrence: CA)
  Receive Date: 20130301
  Receipt Date: 20130301
  Transmission Date: 20140127
  Serious: Yes (Hospitalization)
  Sender: FDA-Public Use
  Company Number: CA-B.I. PHARMACEUTICALS,INC./RIDGEFIELD-2013-BI-05208GD

PATIENT
  Age: 54 Year
  Sex: Female

DRUGS (5)
  1. TIOTROPIUM BROMIDE [Suspect]
     Indication: CHRONIC OBSTRUCTIVE PULMONARY DISEASE
     Dosage: 18 MCG
     Route: 055
  2. CLOZAPINE [Suspect]
     Indication: SCHIZOPHRENIA
     Dosage: 337.5 MG
  3. LITHIUM [Suspect]
     Indication: BIPOLAR DISORDER
     Dosage: 450 MG
  4. OXYBUTYNIN [Suspect]
     Dosage: 10 MG
  5. VALPROIC ACID [Concomitant]
     Dosage: 1000 MG

REACTIONS (5)
  - Colonic pseudo-obstruction [Recovered/Resolved]
  - Abdominal pain lower [Recovered/Resolved]
  - Abdominal distension [Recovered/Resolved]
  - Abdominal distension [Recovered/Resolved]
  - Diarrhoea [Recovered/Resolved]
